FAERS Safety Report 24008342 (Version 2)
Quarter: 2024Q3

REPORT INFORMATION
  Report Type: Spontaneous
  Country: US (occurrence: US)
  Receive Date: 20240625
  Receipt Date: 20240705
  Transmission Date: 20241016
  Serious: Yes (Other)
  Sender: BIOGEN
  Company Number: US-BIOGEN-2024BI01270414

PATIENT
  Sex: Female

DRUGS (2)
  1. TYSABRI [Suspect]
     Active Substance: NATALIZUMAB
     Indication: Multiple sclerosis
     Route: 050
     Dates: start: 20160714, end: 20171207
  2. TYSABRI [Suspect]
     Active Substance: NATALIZUMAB
     Route: 050
     Dates: start: 20190531

REACTIONS (15)
  - Deafness transitory [Unknown]
  - Insomnia [Unknown]
  - Tinnitus [Unknown]
  - Hypoaesthesia [Unknown]
  - Memory impairment [Unknown]
  - Gait disturbance [Unknown]
  - Central nervous system lesion [Unknown]
  - Gastrointestinal disorder [Unknown]
  - Eating disorder [Unknown]
  - Musculoskeletal disorder [Unknown]
  - Back pain [Unknown]
  - Cough [Unknown]
  - Chest discomfort [Unknown]
  - Muscle spasms [Unknown]
  - Pain in extremity [Unknown]
